FAERS Safety Report 19727871 (Version 2)
Quarter: 2021Q3

REPORT INFORMATION
  Report Type: Report from Study
  Country: US (occurrence: US)
  Receive Date: 20210820
  Receipt Date: 20210908
  Transmission Date: 20211014
  Serious: Yes (Other)
  Sender: FDA-Public Use
  Company Number: NVSC2021US183849

PATIENT
  Sex: Female

DRUGS (5)
  1. AFINITOR [Suspect]
     Active Substance: EVEROLIMUS
     Dosage: 300 MG, QD
     Route: 065
  2. PIQRAY [Suspect]
     Active Substance: ALPELISIB
     Dosage: 250 UNK
     Route: 048
  3. AFINITOR [Suspect]
     Active Substance: EVEROLIMUS
     Indication: BREAST CANCER
     Dosage: UNK
     Route: 048
  4. PIQRAY [Suspect]
     Active Substance: ALPELISIB
     Indication: BREAST CANCER
     Dosage: 300 MG, QD
     Route: 048
     Dates: start: 202108
  5. AFINITOR [Suspect]
     Active Substance: EVEROLIMUS
     Dosage: 250 MG, QD
     Route: 065

REACTIONS (7)
  - Hyperglycaemia [Unknown]
  - Swollen tongue [Unknown]
  - Throat tightness [Unknown]
  - Pulmonary mass [Unknown]
  - Fatigue [Unknown]
  - Swelling face [Unknown]
  - Urine output increased [Unknown]
